FAERS Safety Report 8611087-4 (Version None)
Quarter: 2012Q2

REPORT INFORMATION
  Report Type: 
  Country: None (occurrence: None)
  Receive Date: 20120423
  Receipt Date: 20100212
  Transmission Date: 20120825
  Serious: Yes (Other)
  Sender: FDA-Public Use
  Company Number: PHEH2010US02500

PATIENT
  Age: 82 Year
  Sex: Male

DRUGS (2)
  1. EXJADE [Suspect]
     Indication: LYMPHOPROLIFERATIVE DISORDER
     Dosage: 750 MG, QD, ORAL
     Route: 048
     Dates: start: 20091201, end: 20100201
  2. EXJADE [Suspect]
     Indication: IRON OVERLOAD
     Dosage: 750 MG, QD, ORAL
     Route: 048
     Dates: start: 20091201, end: 20100201

REACTIONS (1)
  - PLATELET COUNT DECREASED [None]
